FAERS Safety Report 7097055-5 (Version None)
Quarter: 2010Q4

REPORT INFORMATION
  Report Type: 
  Country: None (occurrence: None)
  Receive Date: 20101111
  Receipt Date: 20101103
  Transmission Date: 20110411
  Serious: Yes (Other)
  Sender: FDA-Public Use
  Company Number: CA-BAYER-201030305NA

PATIENT
  Age: 38 Year
  Sex: Female
  Weight: 54 kg

DRUGS (7)
  1. CIPRO XR [Suspect]
     Indication: URINARY TRACT INFECTION
     Dosage: TOTAL DAILY DOSE: 500 MG  UNIT DOSE: 500 MG
     Route: 048
     Dates: start: 20100513, end: 20100515
  2. RATIO-SALBUTAMOL [Concomitant]
  3. SYMBICORT [Concomitant]
     Dosage: 200/6
     Route: 055
  4. AMPICILLIN [Concomitant]
     Indication: CARDIAC DISORDER
  5. AMOXICILLIN [Concomitant]
     Indication: CARDIAC DISORDER
  6. PENICILLIN [Concomitant]
     Indication: CARDIAC DISORDER
  7. ERYTHROMYCIN [Concomitant]
     Indication: CARDIAC DISORDER

REACTIONS (10)
  - ANXIETY [None]
  - BEDRIDDEN [None]
  - CONFUSIONAL STATE [None]
  - CONVULSION [None]
  - DIZZINESS [None]
  - JUDGEMENT IMPAIRED [None]
  - LOSS OF CONSCIOUSNESS [None]
  - MUSCULAR WEAKNESS [None]
  - SOMNOLENCE [None]
  - VISION BLURRED [None]
